FAERS Safety Report 8585445-0 (Version None)
Quarter: 2012Q3

REPORT INFORMATION
  Report Type: 
  Country: None (occurrence: None)
  Receive Date: 20120810
  Receipt Date: 20120803
  Transmission Date: 20120928
  Serious: Yes (Hospitalization, Other)
  Sender: FDA-Public Use
  Company Number: US-CELGENEUS-163-21880-12040882

PATIENT
  Sex: Male

DRUGS (4)
  1. REVLIMID [Suspect]
     Dosage: 25 MILLIGRAM
     Route: 048
     Dates: start: 20120618
  2. REVLIMID [Suspect]
     Indication: MULTIPLE MYELOMA
     Dosage: 15 MILLIGRAM
     Route: 048
     Dates: start: 20120220, end: 20120501
  3. COUMADIN [Concomitant]
     Route: 065
  4. BYSTOLIC [Concomitant]
     Route: 065

REACTIONS (8)
  - DIARRHOEA [None]
  - CONTUSION [None]
  - DYSPNOEA [None]
  - GASTROINTESTINAL DISORDER [None]
  - ASTHENIA [None]
  - FATIGUE [None]
  - HYPOTENSION [None]
  - BLOOD IMMUNOGLOBULIN M INCREASED [None]
